FAERS Safety Report 6626338-5 (Version None)
Quarter: 2010Q1

REPORT INFORMATION
  Report Type: 
  Country: None (occurrence: None)
  Receive Date: 20100309
  Receipt Date: 20100309
  Transmission Date: 20100710
  Serious: Yes (Hospitalization)
  Sender: FDA-Public Use
  Company Number: None

PATIENT
  Sex: Male
  Weight: 86 kg

DRUGS (7)
  1. CYTARABINE [Suspect]
     Dosage: 70 MG
  2. DAUNORUBICIN HCL [Suspect]
     Dosage: 159 MG
  3. METHOTREXATE [Suspect]
     Dosage: 30 MG
  4. METHYLPREDNISOLONE [Suspect]
     Dosage: 2535 MG
  5. PEG-L ASPARAGINASE (K-H) [Suspect]
     Dosage: 5300 IU
  6. VINCRISTINE SULFATE [Suspect]
     Dosage: 6 MG
  7. ALLOPURINOL [Suspect]
     Dosage: 2700 MG

REACTIONS (8)
  - ACIDOSIS [None]
  - ATRIOVENTRICULAR BLOCK COMPLETE [None]
  - CARDIAC ARREST [None]
  - HYPOXIA [None]
  - OXYGEN SATURATION DECREASED [None]
  - PLEURAL EFFUSION [None]
  - PULMONARY HAEMORRHAGE [None]
  - VENTRICULAR TACHYCARDIA [None]
